FAERS Safety Report 10650279 (Version 2)
Quarter: 2014Q4

REPORT INFORMATION
  Report Type: Report from Study
  Country: JP (occurrence: JP)
  Receive Date: 20141212
  Receipt Date: 20141212
  Transmission Date: 20150529
  Serious: Yes (Death, Life-Threatening)
  Sender: FDA-Public Use
  Company Number: JP-CUBIST PHARMACEUTICALS, INC.-2014CBST000286

PATIENT

DRUGS (20)
  1. VOLTAREN [Concomitant]
     Active Substance: DICLOFENAC SODIUM
     Indication: PRODUCT USED FOR UNKNOWN INDICATION
     Dosage: 25 MG, BID
     Route: 048
     Dates: start: 201305, end: 20131204
  2. MUCODYNE [Concomitant]
     Active Substance: CARBOCYSTEINE
     Indication: PROPHYLAXIS
     Dosage: 500 MG, TID
     Route: 048
     Dates: start: 20131118, end: 20131204
  3. OXYCONTIN [Concomitant]
     Active Substance: OXYCODONE HYDROCHLORIDE
     Indication: ANALGESIC THERAPY
     Dosage: 10 MG, ONCE A DAY
     Route: 048
     Dates: start: 20131130, end: 20131204
  4. MODACIN [Concomitant]
     Active Substance: CEFTAZIDIME
     Dosage: 1 G, BID
     Route: 051
     Dates: start: 20131126, end: 20131128
  5. MODACIN [Concomitant]
     Active Substance: CEFTAZIDIME
     Dosage: 1 G, ONCE DAILY
     Route: 051
     Dates: start: 20131129, end: 20131204
  6. DAPTOMYCIN. [Suspect]
     Active Substance: DAPTOMYCIN
     Dosage: 4.5 MG/KG, ONCE IN 2 DAYS
     Route: 041
     Dates: start: 20131130, end: 20131204
  7. CALCIUM COMPOUNDS AND PREPARATIONS [Concomitant]
     Active Substance: CALCIUM
     Indication: PRODUCT USED FOR UNKNOWN INDICATION
     Dosage: 2 G, BID
     Route: 048
     Dates: start: 201302, end: 20131204
  8. AMLODIPINE                         /00972402/ [Concomitant]
     Active Substance: AMLODIPINE BESYLATE
     Indication: PRODUCT USED FOR UNKNOWN INDICATION
     Dosage: 5 MG, ONCE DAILY
     Route: 048
     Dates: start: 2012, end: 20131204
  9. ATORVASTATIN [Concomitant]
     Active Substance: ATORVASTATIN
     Indication: PRODUCT USED FOR UNKNOWN INDICATION
     Dosage: 250 ?G, ONCE DAILY
     Route: 048
     Dates: start: 2012, end: 20131204
  10. FLOMOX [Concomitant]
     Active Substance: CEFCAPENE PIVOXIL HYDROCHLORIDE HYDRATE
     Indication: STAPHYLOCOCCAL SKIN INFECTION
     Dosage: 100 MG, BID
     Route: 048
     Dates: start: 20131121, end: 20131127
  11. OMEPRAL                            /00661201/ [Concomitant]
     Active Substance: OMEPRAZOLE
     Indication: PRODUCT USED FOR UNKNOWN INDICATION
     Dosage: 20 MG, ONCE DAILY
     Route: 051
     Dates: start: 20131204, end: 20131205
  12. NAIXAN                             /00256201/ [Concomitant]
     Indication: PAIN MANAGEMENT
     Dosage: 100 MG, ONCE DAILY
     Route: 048
     Dates: start: 20131112, end: 20131204
  13. MORPHINE HYDROCHLORIDE [Concomitant]
     Active Substance: MORPHINE HYDROCHLORIDE
     Indication: PRODUCT USED FOR UNKNOWN INDICATION
     Dosage: 10 ?G, ONCE DAILY
     Route: 051
     Dates: start: 20131204, end: 20131205
  14. DAPTOMYCIN. [Suspect]
     Active Substance: DAPTOMYCIN
     Indication: STAPHYLOCOCCAL SKIN INFECTION
     Dosage: 5.4 MG/KG, ONCE A DAY
     Route: 041
     Dates: start: 20131125, end: 20131128
  15. TIENAM [Concomitant]
     Active Substance: CILASTATIN SODIUM\IMIPENEM
     Indication: PRODUCT USED FOR UNKNOWN INDICATION
     Dosage: 1 G, QD
     Route: 041
     Dates: start: 20131115, end: 20131125
  16. LASIX [Concomitant]
     Active Substance: FUROSEMIDE
     Indication: PRODUCT USED FOR UNKNOWN INDICATION
     Dosage: 20 MG, ONCE DAILY
     Route: 048
     Dates: start: 201308, end: 20131204
  17. DAPTOMYCIN. [Suspect]
     Active Substance: DAPTOMYCIN
     Indication: SOFT TISSUE INFECTION
     Dosage: 4.5 MG/KG, ONCE A DAY
     Route: 041
     Dates: start: 20131129, end: 20131129
  18. ROCALTROL [Concomitant]
     Active Substance: CALCITRIOL
     Indication: PRODUCT USED FOR UNKNOWN INDICATION
     Dosage: 0.5 ?G, ONCE DAILY
     Route: 048
     Dates: start: 2012, end: 20131204
  19. GASTER [Concomitant]
     Active Substance: FAMOTIDINE
     Indication: PRODUCT USED FOR UNKNOWN INDICATION
     Dosage: 20 MG, ONCE DAILY
     Route: 048
     Dates: start: 2012, end: 20131204
  20. MODACIN [Concomitant]
     Active Substance: CEFTAZIDIME
     Indication: STAPHYLOCOCCAL SKIN INFECTION
     Dosage: 1 G, ONCE DAILY
     Route: 051
     Dates: start: 20131125, end: 20131125

REACTIONS (3)
  - Overdose [Unknown]
  - Renal impairment [Fatal]
  - Prostate cancer [Fatal]

NARRATIVE: CASE EVENT DATE: 201311
